FAERS Safety Report 4705745-1 (Version None)
Quarter: 2005Q3

REPORT INFORMATION
  Report Type: 
  Country: None (occurrence: None)
  Receive Date: 20050701
  Receipt Date: 20020514
  Transmission Date: 20060218
  Serious: Yes (Hospitalization, Disabling, Other)
  Sender: FDA-Public Use
  Company Number: US-MERCK-0205USA01794

PATIENT
  Age: 48 Year
  Sex: Female
  Weight: 205 kg

DRUGS (14)
  1. ULTRAM [Concomitant]
     Route: 065
  2. VENTOLIN [Concomitant]
     Route: 065
  3. TENORMIN [Concomitant]
     Route: 065
     Dates: start: 19850901
  4. VASOTEC [Concomitant]
     Route: 048
     Dates: start: 19850901
  5. CENESTIN [Concomitant]
     Route: 065
  6. LODINE XL [Concomitant]
     Route: 065
  7. QUININE SULFATE [Concomitant]
     Route: 065
  8. K-DUR 10 [Concomitant]
     Route: 065
  9. DITROPAN [Concomitant]
     Route: 065
  10. LASIX [Concomitant]
     Route: 065
     Dates: start: 19850801
  11. LASIX [Concomitant]
     Route: 065
     Dates: start: 19850801
  12. VIOXX [Suspect]
     Indication: JOINT INJURY
     Route: 048
     Dates: start: 20000526, end: 20010630
  13. VIOXX [Suspect]
     Route: 048
     Dates: start: 20010701, end: 20011025
  14. VIOXX [Suspect]
     Route: 048
     Dates: start: 20011228

REACTIONS (52)
  - ABDOMINAL PAIN [None]
  - ABDOMINAL PAIN UPPER [None]
  - ADNEXA UTERI MASS [None]
  - ANXIETY [None]
  - AZOTAEMIA [None]
  - BACK PAIN [None]
  - BLEPHARITIS [None]
  - CANDIDIASIS [None]
  - CARDIAC FAILURE CONGESTIVE [None]
  - CELLULITIS [None]
  - CERVICITIS [None]
  - COUGH [None]
  - CYSTITIS [None]
  - DIARRHOEA [None]
  - DYSPNOEA [None]
  - EMOTIONAL DISTRESS [None]
  - ENDOMETRIAL HYPERPLASIA [None]
  - EPISTAXIS [None]
  - FALLOPIAN TUBE CYST [None]
  - FISTULA [None]
  - FLUID RETENTION [None]
  - GASTRITIS [None]
  - HELICOBACTER PYLORI IDENTIFICATION TEST POSITIVE [None]
  - HYPERTENSION [None]
  - INFECTION [None]
  - IRRITABLE BOWEL SYNDROME [None]
  - LOWER EXTREMITY MASS [None]
  - MELAENA [None]
  - MENISCUS LESION [None]
  - MOBILITY DECREASED [None]
  - MOOD SWINGS [None]
  - MYOCARDIAL INFARCTION [None]
  - NAUSEA [None]
  - NERVOUSNESS [None]
  - NEUROPATHIC PAIN [None]
  - NON-CARDIAC CHEST PAIN [None]
  - OEDEMA PERIPHERAL [None]
  - OSTEOARTHRITIS [None]
  - OVARIAN FIBROSIS [None]
  - PAIN IN EXTREMITY [None]
  - PALPITATIONS [None]
  - PEAU D'ORANGE [None]
  - PHARYNGOLARYNGEAL PAIN [None]
  - PICKWICKIAN SYNDROME [None]
  - PNEUMONIA [None]
  - POST PROCEDURAL HAEMORRHAGE [None]
  - PULMONARY OEDEMA [None]
  - RETCHING [None]
  - SUPRAVENTRICULAR TACHYCARDIA [None]
  - UPPER RESPIRATORY TRACT INFECTION [None]
  - URINARY TRACT INFECTION [None]
  - WEIGHT INCREASED [None]
